FAERS Safety Report 26149388 (Version 1)
Quarter: 2025Q4

REPORT INFORMATION
  Report Type: Other
  Country: EU (occurrence: EU)
  Receive Date: 20251212
  Receipt Date: 20251212
  Transmission Date: 20260118
  Serious: Yes (Life-Threatening, Hospitalization)
  Sender: Steriscience PTE
  Company Number: None

PATIENT
  Age: 64 Year
  Sex: Male
  Weight: 86.6 kg

DRUGS (19)
  1. MEROPENEM [Suspect]
     Active Substance: MEROPENEM
     Indication: Bacterial infection
     Dosage: 3 GRAM, QD
     Route: 042
     Dates: start: 20251109, end: 20251114
  2. MEROPENEM [Suspect]
     Active Substance: MEROPENEM
     Dosage: 1 GRAM, BID
     Route: 042
     Dates: start: 20251124
  3. TAFINLAR [Suspect]
     Active Substance: DABRAFENIB MESYLATE
     Indication: Metastatic malignant melanoma
     Dosage: 150 MILLIGRAM, EVERY 12 HOURS
     Route: 048
     Dates: start: 20251105
  4. MEKINIST [Suspect]
     Active Substance: TRAMETINIB DIMETHYL SULFOXIDE
     Indication: Metastatic malignant melanoma
     Dosage: 2 MILLIGRAM, QD
     Route: 048
     Dates: start: 20251105
  5. PANTOPRAZOLE [Suspect]
     Active Substance: PANTOPRAZOLE
     Indication: Gastrointestinal haemorrhage
     Dosage: 200 MILLIGRAM, QD
     Route: 042
     Dates: start: 20251030, end: 20251104
  6. PANTOPRAZOLE [Suspect]
     Active Substance: PANTOPRAZOLE
     Dosage: 200 MILLIGRAM, QD
     Route: 042
     Dates: start: 20251114, end: 20251121
  7. PANTOPRAZOLE [Suspect]
     Active Substance: PANTOPRAZOLE
     Indication: Gastrointestinal haemorrhage
     Dosage: 40 MILLIGRAM, EVERY 12 HOURS
     Route: 048
     Dates: start: 20251105, end: 20251113
  8. PANTOPRAZOLE [Suspect]
     Active Substance: PANTOPRAZOLE
     Dosage: 40 MILLIGRAM, EVERY 12 HOURS
     Route: 048
     Dates: start: 20251122, end: 20251122
  9. FLUCONAZOLE [Suspect]
     Active Substance: FLUCONAZOLE
     Indication: Systemic candida
     Dosage: 400 MILLIGRAM, QD
     Route: 042
     Dates: start: 20251117, end: 20251127
  10. BACTRIM [Suspect]
     Active Substance: SULFAMETHOXAZOLE\TRIMETHOPRIM
     Indication: Antibiotic prophylaxis
     Dosage: 1 DOSAGE FORM
     Route: 048
     Dates: start: 20251118, end: 20251118
  11. BACTRIM [Suspect]
     Active Substance: SULFAMETHOXAZOLE\TRIMETHOPRIM
     Dosage: 1 DOSAGE FORM
     Route: 048
     Dates: start: 20251121
  12. URSODIOL [Concomitant]
     Active Substance: URSODIOL
     Indication: Cholestasis
     Dosage: 1000 MILLIGRAM, QD
     Route: 048
     Dates: start: 20251028
  13. FIDAXOMICIN [Concomitant]
     Active Substance: FIDAXOMICIN
     Indication: Clostridium difficile infection
     Dosage: 200 MILLIGRAM, BID
     Route: 048
     Dates: start: 20251114, end: 20251125
  14. Solupred [Concomitant]
     Indication: Haemophagocytic lymphohistiocytosis
     Dosage: 1 MILLIGRAM/KILOGRAM, QD
     Route: 048
     Dates: start: 20251028, end: 20251030
  15. Solupred [Concomitant]
     Dosage: 2 MILLIGRAM/KILOGRAM, QD
     Route: 048
     Dates: start: 20251030, end: 20251108
  16. Solupred [Concomitant]
     Dosage: 60 MILLIGRAM, QD
     Route: 048
     Dates: start: 20251118, end: 20251124
  17. Solupred [Concomitant]
     Dosage: 20 MILLIGRAM, QD
     Route: 048
     Dates: start: 20251127
  18. SOLU-MEDROL [Concomitant]
     Active Substance: METHYLPREDNISOLONE SODIUM SUCCINATE
     Indication: Haemophagocytic lymphohistiocytosis
     Dosage: 500 MILLIGRAM, QD
     Route: 042
     Dates: start: 20251025, end: 20251027
  19. HYDROCORTISONE [Concomitant]
     Active Substance: HYDROCORTISONE
     Indication: Haemophagocytic lymphohistiocytosis
     Dosage: 200 MILLIGRAM, QD
     Route: 042
     Dates: start: 20251124, end: 20251125

REACTIONS (2)
  - Pancytopenia [None]
  - Agranulocytosis [None]

NARRATIVE: CASE EVENT DATE: 20251123
